FAERS Safety Report 6120260-9 (Version None)
Quarter: 2009Q1

REPORT INFORMATION
  Report Type: 
  Country: None (occurrence: None)
  Receive Date: 20090312
  Receipt Date: 20090227
  Transmission Date: 20090719
  Serious: Yes (Hospitalization)
  Sender: FDA-Public Use
  Company Number: 2009000035

PATIENT
  Age: 84 Year
  Sex: Female

DRUGS (15)
  1. ERLOTINIB                  (ERLONITINB) [Suspect]
     Indication: LUNG NEOPLASM MALIGNANT
     Dosage: 150 MG, QD, ORAL
     Route: 048
     Dates: start: 20080529, end: 20081203
  2. SUNITINIB/PLACEBO [Suspect]
     Dosage: QD, ORAL
     Route: 048
     Dates: start: 20080529, end: 20081203
  3. XOPENEX (LEVOSALBULATMOL) [Concomitant]
  4. IMDUR [Concomitant]
  5. ADVAIR HFA [Concomitant]
  6. LESCOL [Concomitant]
  7. TIOTROPIUM BROMIDE [Concomitant]
  8. CARAFATE [Concomitant]
  9. ZOCOR [Concomitant]
  10. ACETYLSALICYLIC ACID SRT [Concomitant]
  11. LOTREL [Concomitant]
  12. ANUSOL (ANUSOL) [Concomitant]
  13. ANTIHEMORRHOIDALS NOS [Concomitant]
  14. PROTONIX [Concomitant]
  15. LOPERAMIDE HYDROCHLORIDE [Concomitant]

REACTIONS (3)
  - MALIGNANT NEOPLASM PROGRESSION [None]
  - MENTAL STATUS CHANGES [None]
  - RECTAL HAEMORRHAGE [None]
